FAERS Safety Report 13105400 (Version 1)
Quarter: 2017Q1

REPORT INFORMATION
  Report Type: Report from Study
  Country: US (occurrence: US)
  Receive Date: 20170111
  Receipt Date: 20170111
  Transmission Date: 20170428
  Serious: Yes (Hospitalization)
  Sender: FDA-Public Use
  Company Number: US-US WORLDMEDS, LLC-USW201701-000003

PATIENT
  Age: 4 Month
  Sex: Female

DRUGS (1)
  1. NADOLOL. [Suspect]
     Active Substance: NADOLOL
     Indication: SUPRAVENTRICULAR TACHYCARDIA

REACTIONS (3)
  - Atrioventricular block second degree [Unknown]
  - Product use issue [Unknown]
  - Bradycardia [Recovered/Resolved]
